FAERS Safety Report 9093221 (Version 2)
Quarter: 2017Q3

REPORT INFORMATION
  Report Type: Report from Study
  Country: US (occurrence: US)
  Receive Date: 20130201
  Receipt Date: 20170724
  Transmission Date: 20171128
  Serious: Yes (Other)
  Sender: FDA-Public Use
  Company Number: US-ROCHE-1183850

PATIENT
  Age: 73 Year
  Sex: Male
  Weight: 65 kg

DRUGS (3)
  1. RITUXIMAB. [Suspect]
     Active Substance: RITUXIMAB
     Indication: IMMUNOSUPPRESSION
     Route: 042
     Dates: start: 20120307
  2. BENDAMUSTINE [Suspect]
     Active Substance: BENDAMUSTINE
     Indication: IMMUNOSUPPRESSION
     Route: 065
     Dates: start: 20120308
  3. TEMSIROLIMUS [Suspect]
     Active Substance: TEMSIROLIMUS
     Indication: IMMUNOSUPPRESSION
     Route: 065
     Dates: start: 20120309

REACTIONS (1)
  - Lymphopenia [Recovering/Resolving]

NARRATIVE: CASE EVENT DATE: 20120322
